FAERS Safety Report 10799707 (Version 1)
Quarter: 2015Q1

REPORT INFORMATION
  Report Type: Report from Study
  Country: US (occurrence: US)
  Receive Date: 20150216
  Receipt Date: 20150216
  Transmission Date: 20150721
  Serious: No
  Sender: FDA-Public Use
  Company Number: US-ABBVIE-14K-163-1242378-00

PATIENT
  Age: 12 Year
  Sex: Female

DRUGS (7)
  1. HUMIRA [Suspect]
     Active Substance: ADALIMUMAB
     Indication: JUVENILE IDIOPATHIC ARTHRITIS
     Dates: start: 201402
  2. VYVANSE [Concomitant]
     Active Substance: LISDEXAMFETAMINE DIMESYLATE
     Indication: PRODUCT USED FOR UNKNOWN INDICATION
     Dosage: MONDAY-FRIDAY 20 MG DAILY
  3. LEVOTHYROXINE [Concomitant]
     Active Substance: LEVOTHYROXINE
     Indication: PRODUCT USED FOR UNKNOWN INDICATION
  4. PREDNISONE. [Concomitant]
     Active Substance: PREDNISONE
     Indication: PRODUCT USED FOR UNKNOWN INDICATION
     Dosage: IN THE AM
  5. SULFASALAZINE. [Concomitant]
     Active Substance: SULFASALAZINE
     Indication: PRODUCT USED FOR UNKNOWN INDICATION
  6. OMEPRAZOLE. [Concomitant]
     Active Substance: OMEPRAZOLE
     Indication: PRODUCT USED FOR UNKNOWN INDICATION
  7. MVI [Concomitant]
     Active Substance: VITAMINS
     Indication: PRODUCT USED FOR UNKNOWN INDICATION

REACTIONS (11)
  - Injection site pain [Not Recovered/Not Resolved]
  - Fatigue [Unknown]
  - Staphylococcal infection [Unknown]
  - Incorrect dose administered [Unknown]
  - Mobility decreased [Unknown]
  - Wrong technique in drug usage process [Unknown]
  - Gait disturbance [Unknown]
  - Blister [Unknown]
  - Arthralgia [Not Recovered/Not Resolved]
  - Pyrexia [Unknown]
  - Rash papular [Recovered/Resolved]

NARRATIVE: CASE EVENT DATE: 2014
